FAERS Safety Report 5537530-5 (Version None)
Quarter: 2007Q4

REPORT INFORMATION
  Report Type: 
  Country: None (occurrence: None)
  Receive Date: 20071207
  Receipt Date: 20070307
  Transmission Date: 20080405
  Serious: Yes (Death)
  Sender: FDA-Public Use
  Company Number: JP-ROCHE-486685

PATIENT
  Age: 72 Year
  Sex: Female

DRUGS (4)
  1. PEGASYS [Suspect]
     Route: 058
     Dates: start: 20060905
  2. PEGASYS [Suspect]
     Route: 058
     Dates: start: 20070303, end: 20070303
  3. NORVASC [Concomitant]
     Indication: HYPERTENSION
     Route: 048
  4. ANTIBIOTIC NOS [Concomitant]
     Dosage: ANTIBIOTIC PREPARATIONS.

REACTIONS (2)
  - CARDIO-RESPIRATORY ARREST [None]
  - SUDDEN DEATH [None]
